FAERS Safety Report 6620628-8 (Version None)
Quarter: 2010Q1

REPORT INFORMATION
  Report Type: 
  Country: None (occurrence: None)
  Receive Date: 20100309
  Receipt Date: 20100226
  Transmission Date: 20100710
  Serious: Yes (Other)
  Sender: FDA-Public Use
  Company Number: GB-PFIZER INC-2010025604

PATIENT
  Age: 42 Year
  Sex: Female

DRUGS (2)
  1. TOVIAZ [Suspect]
     Indication: HYPERTONIC BLADDER
     Dosage: 8 MG, UNK
  2. TOVIAZ [Suspect]
     Dosage: 4 MG, UNK

REACTIONS (2)
  - DRY MOUTH [None]
  - PALPITATIONS [None]
